FAERS Safety Report 16881761 (Version 1)
Quarter: 2019Q4

REPORT INFORMATION
  Report Type: Spontaneous
  Country: FR (occurrence: FR)
  Receive Date: 20191003
  Receipt Date: 20191003
  Transmission Date: 20200122
  Serious: Yes (Hospitalization, Other)
  Sender: FDA-Public Use
  Company Number: FR-PFIZER INC-2012103135

PATIENT
  Age: 84 Year
  Sex: Male

DRUGS (8)
  1. LASILIX [Suspect]
     Active Substance: FUROSEMIDE
     Dosage: 40 MG TWICE DAILY (BID)
     Route: 048
     Dates: start: 2009
  2. FORLAX [Suspect]
     Active Substance: POLYETHYLENE GLYCOL 4000
     Dosage: UNK
     Route: 048
  3. CORTANCYL [Suspect]
     Active Substance: PREDNISONE
     Dosage: 5 MG, 1X/DAY (5MG, QD)
     Route: 048
  4. XATRAL [Suspect]
     Active Substance: ALFUZOSIN
     Dosage: UNK
     Route: 048
  5. NOVONORM [Suspect]
     Active Substance: REPAGLINIDE
     Indication: TYPE 2 DIABETES MELLITUS
     Dosage: UNK
     Route: 048
     Dates: end: 20120312
  6. LASILIX [Suspect]
     Active Substance: FUROSEMIDE
     Dosage: 80 MG, 1X/DAY
     Route: 048
     Dates: start: 2009
  7. NITRIDERM TTS [Suspect]
     Active Substance: NITROGLYCERIN
     Dosage: 10 MG, 1X/DAY (QD)
     Route: 062
     Dates: start: 2009
  8. NOVATREX NOS [Suspect]
     Active Substance: AZITHROMYCIN OR METHOTREXATE SODIUM
     Dosage: 10 MG, WEEKLY
     Route: 048
     Dates: start: 2001, end: 20120312

REACTIONS (1)
  - Pulmonary alveolar haemorrhage [Recovered/Resolved]

NARRATIVE: CASE EVENT DATE: 20120312
